FAERS Safety Report 9925700 (Version 1)
Quarter: 2014Q1

REPORT INFORMATION
  Report Type: Spontaneous
  Country: GB (occurrence: GB)
  Receive Date: 20140226
  Receipt Date: 20140226
  Transmission Date: 20141002
  Serious: Yes (Other)
  Sender: FDA-Public Use
  Company Number: GB-GLAXOSMITHKLINE-B0971230A

PATIENT
  Age: 18 Year
  Sex: Female

DRUGS (13)
  1. ONDANSETRON [Suspect]
     Indication: PROPHYLAXIS
     Route: 042
     Dates: start: 20140131, end: 20140131
  2. MABTHERA [Concomitant]
     Indication: JUVENILE IDIOPATHIC ARTHRITIS
     Route: 042
  3. PHENYTOIN [Concomitant]
     Indication: EPILEPSY
     Route: 048
  4. PREDNISOLONE [Concomitant]
     Indication: STEROID THERAPY
     Route: 048
  5. LEVETIRACETAM [Concomitant]
     Indication: EPILEPSY
     Route: 048
  6. FOLIC ACID [Concomitant]
     Indication: VITAMIN SUPPLEMENTATION
     Route: 048
  7. PARACETAMOL [Concomitant]
     Indication: PAIN
     Route: 048
  8. IBUPROFEN [Concomitant]
     Indication: PAIN
     Route: 048
  9. METHYLPREDNISOLONE [Concomitant]
     Indication: STEROID THERAPY
     Route: 042
  10. OMEPRAZOLE [Concomitant]
     Indication: GASTROOESOPHAGEAL REFLUX DISEASE
     Route: 048
  11. METHOTREXATE [Concomitant]
     Indication: JUVENILE IDIOPATHIC ARTHRITIS
     Route: 058
  12. IMMUNOGLOBULIN [Concomitant]
     Indication: JUVENILE IDIOPATHIC ARTHRITIS
     Route: 042
  13. PHENYTOIN [Concomitant]
     Indication: EPILEPSY
     Route: 042

REACTIONS (2)
  - Local swelling [Recovered/Resolved]
  - Erythema [Recovered/Resolved]
